FAERS Safety Report 4594920-5 (Version None)
Quarter: 2005Q1

REPORT INFORMATION
  Report Type: 
  Country: None (occurrence: None)
  Receive Date: 20050223
  Receipt Date: 20050201
  Transmission Date: 20050727
  Serious: Yes (Hospitalization)
  Sender: FDA-Public Use
  Company Number: 212418

PATIENT
  Age: 55 Year
  Sex: 0

DRUGS (2)
  1. BEVACIZUMAB (BEVACIZUMAB) PWDR + SOLVENT INFUSION SOLN 100 MG [Suspect]
     Indication: METASTATIC NEOPLASM
     Dosage: 15 MG/KG, Q3W, INTRAVENOUS
     Route: 042
     Dates: start: 20041122
  2. ERLOTINIB(ERLOTINIB) TABLET, 150MG [Suspect]
     Indication: METASTATIC NEOPLASM
     Dosage: 150 MG, QD, ORAL
     Route: 048
     Dates: start: 20041122

REACTIONS (6)
  - ABDOMINAL PAIN [None]
  - CAECITIS [None]
  - COLITIS [None]
  - LARGE INTESTINE PERFORATION [None]
  - PNEUMONIA [None]
  - SEROSITIS [None]
